FAERS Safety Report 10255128 (Version 1)
Quarter: 2014Q2

REPORT INFORMATION
  Report Type: Spontaneous
  Country: US (occurrence: US)
  Receive Date: 20140624
  Receipt Date: 20140624
  Transmission Date: 20141212
  Serious: No
  Sender: FDA-Public Use
  Company Number: US-TEVA-489967USA

PATIENT
  Age: 33 Year
  Sex: Female

DRUGS (1)
  1. PLAN B ONE-STEP [Suspect]
     Indication: POST COITAL CONTRACEPTION
     Dates: start: 2006, end: 2006

REACTIONS (2)
  - Dysmenorrhoea [Unknown]
  - Product physical issue [Unknown]
